FAERS Safety Report 24753148 (Version 1)
Quarter: 2024Q4

REPORT INFORMATION
  Report Type: Spontaneous
  Country: US (occurrence: US)
  Receive Date: 20241219
  Receipt Date: 20241219
  Transmission Date: 20250115
  Serious: Yes (Other)
  Sender: RANBAXY
  Company Number: US-SUN PHARMACEUTICAL INDUSTRIES LTD-2024R1-485454

PATIENT
  Sex: Male

DRUGS (2)
  1. LEUPROLIDE [Suspect]
     Active Substance: LEUPROLIDE
     Indication: Prophylaxis
     Dosage: 30 MILLIGRAM, MONTHLY
     Route: 030
  2. HISTRELIN ACETATE [Suspect]
     Active Substance: HISTRELIN ACETATE
     Indication: Prophylaxis
     Dosage: UNK
     Route: 058

REACTIONS (1)
  - Disease progression [Unknown]
